FAERS Safety Report 5960682-X (Version None)
Quarter: 2008Q4

REPORT INFORMATION
  Report Type: 
  Country: None (occurrence: None)
  Receive Date: 20081120
  Receipt Date: 20081112
  Transmission Date: 20090506
  Serious: Yes (Death, Life-Threatening, Hospitalization)
  Sender: FDA-Public Use
  Company Number: TW-PFIZER INC-2008072861

PATIENT
  Sex: Female

DRUGS (1)
  1. SU-011,248 [Suspect]
     Indication: BREAST CANCER
     Route: 048
     Dates: start: 20080509, end: 20080830

REACTIONS (3)
  - ALTERED STATE OF CONSCIOUSNESS [None]
  - CARDIAC FAILURE CONGESTIVE [None]
  - DYSPNOEA [None]
